FAERS Safety Report 23207196 (Version 1)
Quarter: 2023Q4

REPORT INFORMATION
  Report Type: Spontaneous
  Country: US (occurrence: US)
  Receive Date: 20231120
  Receipt Date: 20231120
  Transmission Date: 20240109
  Serious: No
  Sender: FDA-Public Use
  Company Number: US-BRACCO-2022US05719

PATIENT
  Sex: Male

DRUGS (3)
  1. LUMASON [Suspect]
     Active Substance: SULFUR HEXAFLUORIDE
     Indication: Diagnostic procedure
     Dosage: UNK, SINGLE
     Route: 042
     Dates: start: 20221110, end: 20221110
  2. LUMASON [Suspect]
     Active Substance: SULFUR HEXAFLUORIDE
     Indication: Diagnostic procedure
     Dosage: UNK, SINGLE
     Route: 042
     Dates: start: 20221110, end: 20221110
  3. LUMASON [Suspect]
     Active Substance: SULFUR HEXAFLUORIDE
     Indication: Diagnostic procedure
     Dosage: UNK, SINGLE
     Route: 042
     Dates: start: 20221110, end: 20221110

REACTIONS (5)
  - Paraesthesia [Unknown]
  - Chest discomfort [Unknown]
  - Throat irritation [Unknown]
  - Throat tightness [Unknown]
  - Hyperhidrosis [Unknown]

NARRATIVE: CASE EVENT DATE: 20221110
